FAERS Safety Report 7532627-2 (Version None)
Quarter: 2011Q2

REPORT INFORMATION
  Report Type: 
  Country: None (occurrence: None)
  Receive Date: 20110608
  Receipt Date: 20110607
  Transmission Date: 20111010
  Serious: Yes (Other)
  Sender: FDA-Public Use
  Company Number: CHPA2011US07692

PATIENT
  Age: 61 Year
  Sex: Male

DRUGS (2)
  1. MAALOX ADV MAXIMUM STRENGTH ANTACID/ANTIGAS [Suspect]
     Indication: DYSPEPSIA
     Dosage: 2 TSP, QD
     Route: 048
     Dates: start: 20110605
  2. INSULIN [Concomitant]
     Indication: DIABETES MELLITUS

REACTIONS (2)
  - CONCOMITANT DISEASE AGGRAVATED [None]
  - BLOOD GLUCOSE INCREASED [None]
